FAERS Safety Report 6404160-2 (Version None)
Quarter: 2009Q4

REPORT INFORMATION
  Report Type: 
  Country: None (occurrence: None)
  Receive Date: 20091016
  Receipt Date: 20090918
  Transmission Date: 20100525
  Serious: Yes (Other)
  Sender: FDA-Public Use
  Company Number: US-ALEXION-A200900727

PATIENT
  Sex: Female

DRUGS (12)
  1. SOLIRIS [Suspect]
     Indication: PAROXYSMAL NOCTURNAL HAEMOGLOBINURIA
     Dosage: 600 MG, QW
     Route: 042
     Dates: start: 20070918, end: 20071009
  2. SOLIRIS [Suspect]
     Dosage: 900 MG, Q2W
     Route: 042
     Dates: start: 20071016, end: 20090101
  3. SOLIRIS [Suspect]
     Dosage: 700 MG, ONCE
     Route: 042
     Dates: start: 20090101, end: 20090101
  4. SOLIRIS [Suspect]
     Dosage: 900 MG, Q2W
     Route: 042
     Dates: start: 20090101
  5. FOLIC ACID [Concomitant]
     Dosage: 1 MG, QD
     Route: 048
  6. MORPHINE [Concomitant]
     Dosage: 30 MG, PRN
     Route: 048
  7. VALIUM [Concomitant]
     Dosage: 5 MG, PRN
     Route: 048
  8. AMBIEN [Concomitant]
     Dosage: 10 MG, QD
     Route: 048
  9. ZOFRAN [Concomitant]
     Dosage: 8 MG, PRN
     Route: 048
  10. PHENERGAN HCL [Concomitant]
     Dosage: 25 MG, PRN
     Route: 048
  11. LEXAPRO [Concomitant]
     Dosage: 20 MG, QD
     Route: 048
  12. NEUPOGEN [Concomitant]
     Dosage: 300 UG, 3X WEEK

REACTIONS (3)
  - SPLENOMEGALY [None]
  - TUBO-OVARIAN ABSCESS [None]
  - VARICES OESOPHAGEAL [None]
